FAERS Safety Report 9722077 (Version 1)
Quarter: 2013Q4

REPORT INFORMATION
  Report Type: Spontaneous
  Country: US (occurrence: US)
  Receive Date: 20131202
  Receipt Date: 20131202
  Transmission Date: 20140711
  Serious: No
  Sender: FDA-Public Use
  Company Number: US-BIOGENIDEC-2013BI098442

PATIENT
  Sex: Female
  Weight: 77 kg

DRUGS (6)
  1. TECFIDERA [Suspect]
     Indication: PRODUCT USED FOR UNKNOWN INDICATION
     Route: 048
  2. TECFIDERA [Suspect]
     Indication: PRODUCT USED FOR UNKNOWN INDICATION
     Route: 048
  3. GABAPENTIN [Concomitant]
  4. DOLOBID [Concomitant]
  5. ASPIRIN [Concomitant]
  6. MELATONIN [Concomitant]

REACTIONS (2)
  - Diarrhoea [Unknown]
  - Nausea [Unknown]
